FAERS Safety Report 10620509 (Version 2)
Quarter: 2015Q1

REPORT INFORMATION
  Report Type: Report from Study
  Country: US (occurrence: US)
  Receive Date: 20141202
  Receipt Date: 20150325
  Transmission Date: 20150720
  Serious: Yes (Other)
  Sender: FDA-Public Use
  Company Number: US-OTSUKA-US-2014-14144

PATIENT

DRUGS (28)
  1. BLINDED OPC-41061 [Suspect]
     Active Substance: TOLVAPTAN
     Dosage: 0 MG MILLIGRAM(S), BID
     Route: 048
     Dates: start: 20140813, end: 20140820
  2. PLACEBO [Suspect]
     Active Substance: UNSPECIFIED INGREDIENT
     Dosage: 45 MG MILLIGRAM(S), BID
     Route: 048
     Dates: start: 20140824, end: 20140826
  3. PLACEBO [Suspect]
     Active Substance: UNSPECIFIED INGREDIENT
     Dosage: 15 MG MILLIGRAM(S), BID
     Route: 048
     Dates: start: 20140824, end: 20140826
  4. PLACEBO [Suspect]
     Active Substance: UNSPECIFIED INGREDIENT
     Dosage: 0 MG MILLIGRAM(S), BID
     Route: 048
     Dates: start: 20140813, end: 20140820
  5. BLINDED OPC-41061 [Suspect]
     Active Substance: TOLVAPTAN
     Dosage: 15 MG MILLIGRAM(S), BID
     Route: 048
     Dates: start: 20140821, end: 20140823
  6. BLINDED OPC-41061 [Suspect]
     Active Substance: TOLVAPTAN
     Dosage: 90 MG MILLIGRAM(S), BID
     Route: 048
     Dates: start: 20140830, end: 20141027
  7. PLACEBO [Suspect]
     Active Substance: UNSPECIFIED INGREDIENT
     Dosage: 90 MG MILLIGRAM(S), BID
     Route: 048
     Dates: start: 20140830, end: 20141027
  8. PLACEBO [Suspect]
     Active Substance: UNSPECIFIED INGREDIENT
     Dosage: 30 MG MILLIGRAM(S), BID
     Route: 048
     Dates: start: 20140830, end: 20141027
  9. VITAMIN D [Concomitant]
     Active Substance: CHOLECALCIFEROL
     Indication: VITAMIN D DEFICIENCY
     Dosage: 1000 IU, QD
     Route: 048
     Dates: start: 20140501
  10. DIOVAN [Concomitant]
     Active Substance: VALSARTAN
     Indication: HYPERTENSION
     Dosage: 40 MG MILLIGRAM(S), QD
     Route: 048
     Dates: start: 20141003, end: 20141101
  11. PLACEBO [Suspect]
     Active Substance: UNSPECIFIED INGREDIENT
     Dosage: 15 MG MILLIGRAM(S), BID
     Route: 048
     Dates: start: 20140821, end: 20140823
  12. PLACEBO [Suspect]
     Active Substance: UNSPECIFIED INGREDIENT
     Dosage: 30 MG MILLIGRAM(S), BID
     Route: 048
     Dates: start: 20140830, end: 20141028
  13. CIPRO [Concomitant]
     Active Substance: CIPROFLOXACIN HYDROCHLORIDE
     Indication: HAEMATURIA
     Dosage: 500 MG MILLIGRAM(S), QD
     Route: 048
     Dates: start: 20141024, end: 20141026
  14. PLACEBO [Suspect]
     Active Substance: UNSPECIFIED INGREDIENT
     Indication: CONGENITAL CYSTIC KIDNEY DISEASE
     Dosage: 0 MG MILLIGRAM(S), BID
     Route: 048
     Dates: start: 20140813, end: 20140820
  15. PLACEBO [Suspect]
     Active Substance: UNSPECIFIED INGREDIENT
     Dosage: 15 MG MILLIGRAM(S), BID
     Route: 048
     Dates: start: 20140821, end: 20140823
  16. BLINDED OPC-41061 [Suspect]
     Active Substance: TOLVAPTAN
     Dosage: 15 MG MILLIGRAM(S), BID
     Route: 048
     Dates: start: 20140821, end: 20140823
  17. BLINDED OPC-41061 [Suspect]
     Active Substance: TOLVAPTAN
     Dosage: 30 MG MILLIGRAM(S), BID
     Route: 048
     Dates: start: 20140827, end: 20140829
  18. BLINDED OPC-41061 [Suspect]
     Active Substance: TOLVAPTAN
     Dosage: 30 MG MILLIGRAM(S), BID
     Route: 048
     Dates: start: 20140830, end: 20141028
  19. FERREX [Concomitant]
     Indication: ANAEMIA
     Dosage: 150 MG MILLIGRAM(S), QD
     Route: 048
     Dates: start: 20131101
  20. BLINDED OPC-41061 [Suspect]
     Active Substance: TOLVAPTAN
     Dosage: 45 MG MILLIGRAM(S), BID
     Route: 048
     Dates: start: 20140824, end: 20140826
  21. BLINDED OPC-41061 [Suspect]
     Active Substance: TOLVAPTAN
     Dosage: 15 MG MILLIGRAM(S), BID
     Route: 048
     Dates: start: 20140824, end: 20140826
  22. PLACEBO [Suspect]
     Active Substance: UNSPECIFIED INGREDIENT
     Dosage: 60 MG MILLIGRAM(S), BID
     Route: 048
     Dates: start: 20140827, end: 20140829
  23. BLINDED OPC-41061 [Suspect]
     Active Substance: TOLVAPTAN
     Dosage: 30 MG MILLIGRAM(S), BID
     Route: 048
     Dates: start: 20140830, end: 20141027
  24. BLINDED OPC-41061 [Suspect]
     Active Substance: TOLVAPTAN
     Dosage: 90 MG MILLIGRAM(S), BID
     Route: 048
     Dates: start: 20140830, end: 20141028
  25. BLINDED OPC-41061 [Suspect]
     Active Substance: TOLVAPTAN
     Indication: CONGENITAL CYSTIC KIDNEY DISEASE
     Dosage: 0 MG MILLIGRAM(S), BID
     Route: 048
     Dates: start: 20140813, end: 20140820
  26. BLINDED OPC-41061 [Suspect]
     Active Substance: TOLVAPTAN
     Dosage: 60 MG MILLIGRAM(S), BID
     Route: 048
     Dates: start: 20140827, end: 20140829
  27. PLACEBO [Suspect]
     Active Substance: UNSPECIFIED INGREDIENT
     Dosage: 30 MG MILLIGRAM(S), BID
     Route: 048
     Dates: start: 20140827, end: 20140829
  28. PLACEBO [Suspect]
     Active Substance: UNSPECIFIED INGREDIENT
     Dosage: 90 MG MILLIGRAM(S), BID
     Route: 048
     Dates: start: 20140830, end: 20141028

REACTIONS (2)
  - Dysuria [None]
  - Haematuria [Not Recovered/Not Resolved]

NARRATIVE: CASE EVENT DATE: 20141119
